FAERS Safety Report 9986614 (Version 1)
Quarter: 2014Q1

REPORT INFORMATION
  Report Type: Report from Study
  Country: US (occurrence: US)
  Receive Date: 20140307
  Receipt Date: 20140307
  Transmission Date: 20141002
  Serious: No
  Sender: FDA-Public Use
  Company Number: US-ABBVIE-13P-163-1082094-00

PATIENT
  Age: 65 Year
  Sex: Female
  Weight: 81.72 kg

DRUGS (11)
  1. HUMIRA [Suspect]
     Indication: CROHN^S DISEASE
     Route: 058
     Dates: start: 20120928, end: 20120928
  2. HUMIRA [Suspect]
     Route: 058
     Dates: start: 20121012, end: 20121012
  3. HUMIRA [Suspect]
     Route: 058
     Dates: start: 20121026
  4. NORVASC [Concomitant]
     Indication: HYPERTENSION
  5. ALIGN [Concomitant]
     Indication: CROHN^S DISEASE
  6. OMEPRAZOLE [Concomitant]
     Indication: CROHN^S DISEASE
  7. XANAX [Concomitant]
     Indication: CROHN^S DISEASE
  8. CALCIUM [Concomitant]
     Indication: BONE DISORDER
  9. AMITRIPTYLINE [Concomitant]
     Indication: DEPRESSION
  10. FISH OIL [Concomitant]
     Indication: PROPHYLAXIS
  11. AMBIEN [Concomitant]
     Indication: INSOMNIA

REACTIONS (5)
  - Productive cough [Not Recovered/Not Resolved]
  - Laryngitis [Recovered/Resolved]
  - Nasopharyngitis [Recovering/Resolving]
  - Pain [Recovering/Resolving]
  - Headache [Recovering/Resolving]
